FAERS Safety Report 5223517-9 (Version None)
Quarter: 2007Q1

REPORT INFORMATION
  Report Type: 
  Country: None (occurrence: None)
  Receive Date: 20070125
  Receipt Date: 20070112
  Transmission Date: 20070707
  Serious: Yes (Hospitalization)
  Sender: FDA-Public Use
  Company Number: HQWYE348115JAN07

PATIENT
  Age: 82 Year
  Sex: Female
  Weight: 41 kg

DRUGS (7)
  1. EFFEXOR [Suspect]
     Dosage: DOSE AND FREQUENCY UNSPECIFIED, ORAL
     Route: 048
  2. ARICEPT [Suspect]
     Indication: DEMENTIA ALZHEIMER'S TYPE
     Dosage: SEE IMAGE
     Route: 048
     Dates: end: 20060901
  3. ARICEPT [Suspect]
     Indication: DEMENTIA ALZHEIMER'S TYPE
     Dosage: SEE IMAGE
     Route: 048
     Dates: start: 20060901, end: 20061101
  4. ARICEPT [Suspect]
     Indication: DEMENTIA ALZHEIMER'S TYPE
     Dosage: SEE IMAGE
     Route: 048
     Dates: start: 20061101, end: 20061201
  5. NAMENDA [Suspect]
     Dosage: SEE IMAGE
     Route: 048
  6. REMERON [Suspect]
     Dosage: DOSE AND FREQUENCY UNSPECIFIED
  7. RISPERDAL [Suspect]

REACTIONS (3)
  - AGITATION [None]
  - ANOREXIA [None]
  - FAILURE TO THRIVE [None]
